FAERS Safety Report 17264474 (Version 1)
Quarter: 2019Q4

REPORT INFORMATION
  Report Type: Spontaneous
  Country: US (occurrence: US)
  Receive Date: 20191219
  Receipt Date: 20191219
  Transmission Date: 20200122
  Serious: Yes (Death, Life-Threatening)
  Sender: FDA-Public Use
  Company Number: None

PATIENT
  Age: 53 Year
  Sex: Female

DRUGS (1)
  1. CAPECITABINE 500MG [Suspect]
     Active Substance: CAPECITABINE
     Indication: CHEMOTHERAPY
     Dosage: ?          OTHER FREQUENCY:4 BID FOR 14D;?
     Route: 048
     Dates: start: 20191114, end: 20191118

REACTIONS (1)
  - Death [None]

NARRATIVE: CASE EVENT DATE: 20191218
